FAERS Safety Report 9131298 (Version 3)
Quarter: 2013Q4

REPORT INFORMATION
  Report Type: Spontaneous
  Country: US (occurrence: US)
  Receive Date: 20130301
  Receipt Date: 20131107
  Transmission Date: 20140711
  Serious: Yes (Hospitalization, Other)
  Sender: FDA-Public Use
  Company Number: US-009507513-1203USA02848

PATIENT
  Sex: Female
  Weight: 56.69 kg

DRUGS (12)
  1. FOSAMAX [Suspect]
     Indication: OSTEOPENIA
     Dosage: 70 MG, QW
     Route: 048
     Dates: start: 20020204, end: 20091013
  2. FOSAMAX [Suspect]
     Indication: OSTEOPOROSIS
  3. FOSAMAX [Suspect]
     Indication: OSTEOPENIA
     Route: 048
  4. FOSAMAX [Suspect]
     Indication: OSTEOPOROSIS
  5. ALENDRONATE SODIUM [Suspect]
     Indication: OSTEOPENIA
     Dosage: 70 MG, QW
     Route: 048
     Dates: start: 20080206, end: 20090901
  6. ALENDRONATE SODIUM [Suspect]
     Indication: OSTEOPOROSIS
  7. VITAMIN D (UNSPECIFIED) [Concomitant]
     Dosage: 2000 MG, QD
     Dates: start: 1999
  8. ASCORBIC ACID [Concomitant]
     Dosage: 500 MG, UNK
     Dates: start: 1999
  9. VITAMIN E [Concomitant]
     Dosage: 400 MG, UNK
     Dates: start: 1999
  10. POTASSIUM (UNSPECIFIED) [Concomitant]
     Dosage: 5 MG, UNK
     Dates: start: 1999
  11. HORMONES (UNSPECIFIED) [Concomitant]
     Dosage: UNK
     Dates: start: 1997
  12. PREMPRO [Concomitant]

REACTIONS (84)
  - Femur fracture [Unknown]
  - Open reduction of fracture [Unknown]
  - Intramedullary rod insertion [Unknown]
  - Open reduction of fracture [Unknown]
  - Fracture nonunion [Unknown]
  - Medical device pain [Unknown]
  - Medical device removal [Unknown]
  - Bone graft [Unknown]
  - Open reduction of fracture [Unknown]
  - Femur fracture [Unknown]
  - Open reduction of fracture [Unknown]
  - Bone graft [Unknown]
  - Eye operation [Unknown]
  - Knee operation [Unknown]
  - Procedural haemorrhage [Unknown]
  - Surgery [Unknown]
  - Haematoma [Unknown]
  - Cholecystectomy [Unknown]
  - Removal of internal fixation [Unknown]
  - Osteomyelitis bacterial [Unknown]
  - Intramedullary rod insertion [Unknown]
  - Osteotomy [Unknown]
  - Bone graft [Unknown]
  - Open reduction of fracture [Unknown]
  - Debridement [Unknown]
  - Haematocrit decreased [Recovering/Resolving]
  - Enterococcus test positive [Unknown]
  - Myocardial infarction [Unknown]
  - Incision site erythema [Unknown]
  - Fracture displacement [Recovering/Resolving]
  - Endodontic procedure [Unknown]
  - Balance disorder [Unknown]
  - Ulna fracture [Unknown]
  - Fall [Unknown]
  - Wound drainage [Recovering/Resolving]
  - Wound drainage [Unknown]
  - Hypertension [Unknown]
  - Low turnover osteopathy [Unknown]
  - Device failure [Unknown]
  - Insomnia [Unknown]
  - Depression [Unknown]
  - Anxiety [Unknown]
  - Rectal haemorrhage [Unknown]
  - Anxiety [Unknown]
  - Blood pressure increased [Unknown]
  - Tremor [Unknown]
  - Blood glucose increased [Unknown]
  - Arthritis reactive [Unknown]
  - Osteoarthritis [Not Recovered/Not Resolved]
  - Rheumatoid factor positive [Unknown]
  - HLA marker study positive [Unknown]
  - Cyst [Unknown]
  - Intervertebral disc protrusion [Unknown]
  - Sjogren^s syndrome [Unknown]
  - Fatigue [Unknown]
  - Adverse event [Unknown]
  - Arthropathy [Unknown]
  - Rheumatoid arthritis [Unknown]
  - Seronegative arthritis [Unknown]
  - Osteoarthritis [Unknown]
  - Type 2 diabetes mellitus [Unknown]
  - Hypercholesterolaemia [Unknown]
  - Nephrolithiasis [Unknown]
  - Palpitations [Unknown]
  - Musculoskeletal stiffness [Unknown]
  - Mitral valve prolapse [Unknown]
  - Heart rate irregular [Unknown]
  - Heart rate increased [Unknown]
  - Vitamin D deficiency [Unknown]
  - Cyst removal [Unknown]
  - Intervertebral disc disorder [Unknown]
  - Procedural nausea [Recovered/Resolved]
  - Procedural vomiting [Recovered/Resolved]
  - Device breakage [Unknown]
  - Corneal transplant [Unknown]
  - Osteoarthritis [Unknown]
  - Haematocrit decreased [Unknown]
  - Gastrooesophageal reflux disease [Unknown]
  - Headache [Unknown]
  - Diarrhoea [Unknown]
  - Joint swelling [Unknown]
  - Diarrhoea [Unknown]
  - Back pain [Unknown]
  - Arthralgia [Unknown]
